FAERS Safety Report 6234210-8 (Version None)
Quarter: 2009Q2

REPORT INFORMATION
  Report Type: 
  Country: None (occurrence: None)
  Receive Date: 20090618
  Receipt Date: 20090528
  Transmission Date: 20091009
  Serious: Yes (Hospitalization)
  Sender: FDA-Public Use
  Company Number: AT-NOVOPROD-287272

PATIENT
  Age: 40 Year
  Sex: Female
  Weight: 93 kg

DRUGS (8)
  1. LEVEMIR [Suspect]
     Indication: TYPE 1 DIABETES MELLITUS
     Dosage: 80 IU, QD
     Route: 058
     Dates: start: 20090425, end: 20090503
  2. INSULATARD [Suspect]
     Dates: start: 20090503
  3. COZAAR [Concomitant]
     Dosage: 50 MG, UNK
     Route: 048
  4. COSAAR PLUS [Concomitant]
     Dosage: 1 TABLET DAILY
     Route: 048
  5. CONCOR                             /00802601/ [Concomitant]
     Dosage: 10 MG, QD
     Route: 048
  6. SERETIDE                           /01434201/ [Concomitant]
     Route: 055
  7. ASPIRIN [Concomitant]
     Dosage: 1 TABLET DAILY
     Route: 048
  8. SUPRESSIN [Concomitant]

REACTIONS (3)
  - ARTHRALGIA [None]
  - OROPHARYNGEAL PAIN [None]
  - SENSATION OF FOREIGN BODY [None]
